FAERS Safety Report 17823523 (Version 1)
Quarter: 2020Q2

REPORT INFORMATION
  Report Type: Spontaneous
  Country: US (occurrence: US)
  Receive Date: 20200524
  Receipt Date: 20200524
  Transmission Date: 20200714
  Serious: Yes (Life-Threatening, Hospitalization, Disabling, Other)
  Sender: FDA-Public Use
  Company Number: None

PATIENT
  Age: 34 Year
  Sex: Male

DRUGS (1)
  1. CORTIZONE 10 INTENSIVE HEALING [Suspect]
     Active Substance: HYDROCORTISONE
     Indication: SKIN IRRITATION
     Dosage: ?          QUANTITY:1 CAPSULE(S);?
     Route: 061
     Dates: start: 20200524, end: 20200524

REACTIONS (5)
  - Skin irritation [None]
  - Drug ineffective [None]
  - Pruritus [None]
  - Craniocerebral injury [None]
  - Suspected product quality issue [None]
